FAERS Safety Report 22223979 (Version 1)
Quarter: 2023Q2

REPORT INFORMATION
  Report Type: Report from Study
  Country: AR (occurrence: AR)
  Receive Date: 20230418
  Receipt Date: 20230418
  Transmission Date: 20230722
  Serious: Yes (Death)
  Sender: FDA-Public Use
  Company Number: AR-ABBVIE-4732227

PATIENT
  Age: 70 Year
  Sex: Male

DRUGS (2)
  1. VENCLEXTA [Suspect]
     Active Substance: VENETOCLAX
     Indication: Chronic lymphocytic leukaemia
     Dates: start: 202302, end: 202303
  2. Novex [Concomitant]
     Indication: Chronic lymphocytic leukaemia
     Dosage: NOT SPECIFIED
     Dates: start: 202302, end: 202303

REACTIONS (2)
  - Superinfection [Fatal]
  - COVID-19 [Unknown]
